FAERS Safety Report 16478180 (Version 11)
Quarter: 2020Q2

REPORT INFORMATION
  Report Type: Spontaneous
  Country: US (occurrence: US)
  Receive Date: 20190626
  Receipt Date: 20200611
  Transmission Date: 20200713
  Serious: Yes (Other)
  Sender: FDA-Public Use
  Company Number: US-PFIZER INC-2019215126

PATIENT
  Age: 76 Year
  Sex: Female
  Weight: 127 kg

DRUGS (5)
  1. HUMULIN N [Concomitant]
     Active Substance: INSULIN HUMAN
     Dosage: 45 IU, 2X/DAY (45 UNITS IN THE MORNING AND AT BED TIME)
  2. LYRICA [Suspect]
     Active Substance: PREGABALIN
     Indication: DIABETIC NEUROPATHY
     Dosage: 100 MG, UNK
  3. LYRICA [Suspect]
     Active Substance: PREGABALIN
     Dosage: 150 MG, 2X/DAY(MORNING AND NIGHT/ DID NOT TAKE HER MID DAY PILL)
     Route: 048
     Dates: start: 202001
  4. LYRICA [Suspect]
     Active Substance: PREGABALIN
     Indication: NEUROPATHY PERIPHERAL
     Dosage: 150 MG, 3X/DAY (1 CAPSULE THREE TIMES A DAY/ MORNING, MID AND NIGHT)
     Route: 048
  5. HUMULIN R [Concomitant]
     Active Substance: INSULIN HUMAN
     Dosage: UNK, (SLIDING SCALE BEFORE MEALS)

REACTIONS (7)
  - Blood pressure decreased [Not Recovered/Not Resolved]
  - Fall [Unknown]
  - Renal failure [Not Recovered/Not Resolved]
  - Intentional product use issue [Unknown]
  - Pain [Unknown]
  - Panic attack [Unknown]
  - Foot fracture [Unknown]

NARRATIVE: CASE EVENT DATE: 201901
